FAERS Safety Report 23131553 (Version 2)
Quarter: 2023Q4

REPORT INFORMATION
  Report Type: Report from Study
  Country: US (occurrence: US)
  Receive Date: 20231031
  Receipt Date: 20231129
  Transmission Date: 20240110
  Serious: Yes (Other)
  Sender: FDA-Public Use
  Company Number: US-ABBVIE-5378196

PATIENT
  Sex: Male

DRUGS (3)
  1. HUMIRA [Suspect]
     Active Substance: ADALIMUMAB
     Indication: Psoriatic arthropathy
     Dosage: LAST ADMIN DATE: 2023 (MISSED DOSE)
     Route: 058
     Dates: start: 20230801
  2. HUMIRA [Suspect]
     Active Substance: ADALIMUMAB
     Route: 058
     Dates: start: 20230501
  3. HUMIRA [Suspect]
     Active Substance: ADALIMUMAB
     Dosage: FIRST ADMIN DATE: 2023
     Route: 058

REACTIONS (8)
  - Trigger finger [Not Recovered/Not Resolved]
  - Joint stiffness [Recovered/Resolved]
  - Injection site swelling [Unknown]
  - Influenza [Recovered/Resolved]
  - Infection [Recovered/Resolved]
  - Arthritis [Unknown]
  - Therapeutic product effect incomplete [Not Recovered/Not Resolved]
  - Injection site erythema [Unknown]

NARRATIVE: CASE EVENT DATE: 20230101
